FAERS Safety Report 7512770-4 (Version None)
Quarter: 2011Q2

REPORT INFORMATION
  Report Type: 
  Country: None (occurrence: None)
  Receive Date: 20110531
  Receipt Date: 20110523
  Transmission Date: 20111010
  Serious: Yes (Hospitalization)
  Sender: FDA-Public Use
  Company Number: A0929564A

PATIENT
  Age: 69 Year
  Sex: Male

DRUGS (1)
  1. LAMICTAL XR [Suspect]
     Route: 065
     Dates: start: 20081206

REACTIONS (2)
  - CARDIAC DISORDER [None]
  - CONVULSION [None]
